FAERS Safety Report 19767568 (Version 1)
Quarter: 2021Q3

REPORT INFORMATION
  Report Type: Spontaneous
  Country: US (occurrence: US)
  Receive Date: 20210830
  Receipt Date: 20210830
  Transmission Date: 20211014
  Serious: Yes (Disabling)
  Sender: FDA-Public Use
  Company Number: None

PATIENT
  Age: 34 Year
  Sex: Female

DRUGS (1)
  1. ELOCON [Suspect]
     Active Substance: MOMETASONE FUROATE
     Indication: DERMATITIS ATOPIC
     Route: 061
     Dates: start: 20180615

REACTIONS (8)
  - Dermatitis atopic [None]
  - Skin weeping [None]
  - Skin swelling [None]
  - Withdrawal syndrome [None]
  - Pruritus [None]
  - Dry skin [None]
  - Skin exfoliation [None]
  - Erythema [None]

NARRATIVE: CASE EVENT DATE: 20200115
